FAERS Safety Report 25946297 (Version 1)
Quarter: 2025Q4

REPORT INFORMATION
  Report Type: Spontaneous
  Country: MY (occurrence: MY)
  Receive Date: 20251022
  Receipt Date: 20251022
  Transmission Date: 20260118
  Serious: Yes (Hospitalization)
  Sender: SANDOZ
  Company Number: MY-SANDOZ-SDZ2025MY076741

PATIENT
  Age: 16 Year
  Sex: Male

DRUGS (1)
  1. HYRIMOZ [Suspect]
     Active Substance: ADALIMUMAB-ADAZ
     Indication: Irritable bowel syndrome
     Dosage: UNK
     Route: 065

REACTIONS (5)
  - Mouth ulceration [Unknown]
  - Abdominal pain [Unknown]
  - Disease recurrence [Unknown]
  - Irritable bowel syndrome [Unknown]
  - Product use in unapproved indication [Unknown]
